FAERS Safety Report 6869510 (Version 4)
Quarter: 2013Q4

REPORT INFORMATION
  Report Type: Spontaneous
  Country: AU (occurrence: AU)
  Receive Date: 20081218
  Receipt Date: 20131031
  Transmission Date: 20140711
  Serious: Yes (Other)
  Sender: FDA-Public Use
  Company Number: AU-009507513-2008-185491-NL

PATIENT
  Sex: Male

DRUGS (2)
  1. AVANZA [Suspect]
     Indication: DEPRESSION
     Dosage: CONTINUING: NO
     Dates: start: 20080915, end: 20081015
  2. ALCOHOL [Suspect]

REACTIONS (3)
  - Aggression [Unknown]
  - Suicidal ideation [Unknown]
  - Nightmare [Unknown]
